FAERS Safety Report 5506809-5 (Version None)
Quarter: 2007Q4

REPORT INFORMATION
  Report Type: 
  Country: None (occurrence: None)
  Receive Date: 20071105
  Receipt Date: 20071024
  Transmission Date: 20080405
  Serious: Yes (Hospitalization, Other)
  Sender: FDA-Public Use
  Company Number: US-PFIZER INC-2007090161

PATIENT
  Sex: Female

DRUGS (1)
  1. GEODON [Suspect]
     Indication: BIPOLAR DISORDER
     Dates: start: 20070101, end: 20071019

REACTIONS (5)
  - BLOOD PRESSURE INCREASED [None]
  - FEELING JITTERY [None]
  - SWELLING FACE [None]
  - TACHYCARDIA [None]
  - TREMOR [None]
